FAERS Safety Report 25494869 (Version 1)
Quarter: 2025Q2

REPORT INFORMATION
  Report Type: Spontaneous
  Country: CL (occurrence: CL)
  Receive Date: 20250630
  Receipt Date: 20250630
  Transmission Date: 20250716
  Serious: Yes (Other)
  Sender: ORGANON
  Company Number: CL-ORGANON-O2506CHL000784

PATIENT
  Age: 19 Year
  Sex: Female

DRUGS (1)
  1. ETONOGESTREL [Suspect]
     Active Substance: ETONOGESTREL
     Route: 059
     Dates: start: 202211, end: 20250605

REACTIONS (5)
  - Ectopic pregnancy termination [Unknown]
  - Ectopic pregnancy with contraceptive device [Recovered/Resolved]
  - Unintended pregnancy [Recovered/Resolved]
  - Laparotomy [Unknown]
  - Salpingectomy [Unknown]

NARRATIVE: CASE EVENT DATE: 20250101
